FAERS Safety Report 25186656 (Version 2)
Quarter: 2025Q2

REPORT INFORMATION
  Report Type: Spontaneous
  Country: DE (occurrence: DE)
  Receive Date: 20250411
  Receipt Date: 20250418
  Transmission Date: 20250717
  Serious: Yes (Congenital Anomaly)
  Sender: ABBVIE
  Company Number: DE-ASTRAZENECA-202503GLO028322DE

PATIENT
  Weight: 3 kg

DRUGS (14)
  1. MESALAMINE [Suspect]
     Active Substance: MESALAMINE
     Indication: Product used for unknown indication
     Route: 064
     Dates: start: 202402, end: 202402
  2. MESALAMINE [Suspect]
     Active Substance: MESALAMINE
     Indication: Product used for unknown indication
     Dosage: UNK, (3000 MILLIGRAM, QD )
     Route: 064
     Dates: start: 202309, end: 202406
  3. FOLIC ACID [Concomitant]
     Active Substance: FOLIC ACID
     Indication: Prophylaxis of neural tube defect
     Dosage: UNK, 112 MICROGRAM, QD
     Route: 064
     Dates: start: 202309, end: 202311
  4. LEVOTHYROXINE SODIUM [Concomitant]
     Active Substance: LEVOTHYROXINE SODIUM
     Indication: Hypothyroidism
     Dosage: UNK, 112 MICROGRAM, QD  (3 DAYS)
     Route: 064
     Dates: start: 202309, end: 202406
  5. METOPROLOL TARTRATE AND HYDROCHLOROTHIAZIDE [Suspect]
     Active Substance: HYDROCHLOROTHIAZIDE\METOPROLOL TARTRATE
     Indication: Hypertension
     Route: 064
     Dates: start: 202309, end: 202406
  6. Salofalk [Concomitant]
     Indication: Colitis ulcerative
     Route: 064
     Dates: start: 202404, end: 202405
  7. Salofalk [Concomitant]
     Indication: Colitis ulcerative
     Route: 064
     Dates: start: 202402, end: 202402
  8. Salofalk [Concomitant]
     Indication: Colitis ulcerative
     Route: 064
     Dates: start: 202406, end: 202406
  9. Salofalk [Concomitant]
     Indication: Colitis ulcerative
     Route: 064
     Dates: start: 202402, end: 202402
  10. Salofalk [Concomitant]
     Indication: Colitis ulcerative
     Route: 064
     Dates: start: 202406, end: 202406
  11. VITAMIN D3 [Concomitant]
     Active Substance: CHOLECALCIFEROL
     Indication: Vitamin D deficiency
     Dosage: UNK, 2000 INTERNATIONAL UNIT, QD (49 DAYS)
     Route: 064
     Dates: start: 202309, end: 202311
  12. NIFEDIPINE [Suspect]
     Active Substance: NIFEDIPINE
     Indication: Hypertension
     Route: 064
     Dates: start: 202404, end: 202404
  13. NIFEDIPINE [Suspect]
     Active Substance: NIFEDIPINE
     Indication: Hypertension
     Route: 064
     Dates: start: 202309, end: 202403
  14. NIFEDIPINE [Suspect]
     Active Substance: NIFEDIPINE
     Indication: Hypertension
     Route: 064
     Dates: start: 202405, end: 202405

REACTIONS (2)
  - Congenital anisocoria [Unknown]
  - Foetal exposure during pregnancy [Unknown]
